FAERS Safety Report 7829972-X (Version None)
Quarter: 2011Q4

REPORT INFORMATION
  Report Type: 
  Country: None (occurrence: None)
  Receive Date: 20111021
  Receipt Date: 20111003
  Transmission Date: 20120403
  Serious: Yes (Other)
  Sender: FDA-Public Use
  Company Number: US-BAYER-2011-088976

PATIENT
  Sex: Female

DRUGS (2)
  1. MIRENA [Suspect]
     Indication: CONTRACEPTION
     Dosage: 20 MCG/24HR, CONT
     Route: 015
     Dates: start: 20110131
  2. MIRENA [Suspect]
     Indication: MENORRHAGIA

REACTIONS (5)
  - BRADYCARDIA [None]
  - URINARY TRACT INFECTION [None]
  - DIZZINESS [None]
  - SYNCOPE [None]
  - CONVULSION [None]
